FAERS Safety Report 7802430-4 (Version None)
Quarter: 2011Q4

REPORT INFORMATION
  Report Type: 
  Country: None (occurrence: None)
  Receive Date: 20111007
  Receipt Date: 20090129
  Transmission Date: 20120403
  Serious: Yes (Hospitalization)
  Sender: FDA-Public Use
  Company Number: US-GLAXOSMITHKLINE-A0766638A

PATIENT
  Age: 53 Year
  Sex: Female
  Weight: 101.8 kg

DRUGS (6)
  1. AVANDIA [Suspect]
     Indication: TYPE 2 DIABETES MELLITUS
     Dosage: 8MG PER DAY
     Route: 048
  2. GLUCOPHAGE [Concomitant]
  3. COZAAR [Concomitant]
  4. LIPITOR [Concomitant]
  5. NORVASC [Concomitant]
  6. ATENOLOL [Concomitant]

REACTIONS (2)
  - CHEST PAIN [None]
  - PALPITATIONS [None]
